FAERS Safety Report 5504073-4 (Version None)
Quarter: 2007Q4

REPORT INFORMATION
  Report Type: 
  Country: None (occurrence: None)
  Receive Date: 20071030
  Receipt Date: 20071023
  Transmission Date: 20080405
  Serious: Yes (Hospitalization)
  Sender: FDA-Public Use
  Company Number: TAP2007Q01415

PATIENT
  Age: 58 Year
  Sex: Female
  Weight: 56.7 kg

DRUGS (4)
  1. PREVACID [Suspect]
     Dosage: 15 MG, 1 IN 1 D, ORAL
     Route: 048
     Dates: start: 19980401
  2. BONIVA (IBANDRONATE SODIUM) [Concomitant]
  3. CALCIUM SUPPLEMENT (CALCIUM) [Concomitant]
  4. ACETAMINOPHEN [Concomitant]

REACTIONS (3)
  - FALL [None]
  - HIP FRACTURE [None]
  - OSTEOPENIA [None]
